FAERS Safety Report 5106871-8 (Version None)
Quarter: 2006Q3

REPORT INFORMATION
  Report Type: 
  Country: None (occurrence: None)
  Receive Date: 20060913
  Receipt Date: 20060908
  Transmission Date: 20061208
  Serious: Yes (Death, Life-Threatening, Hospitalization)
  Sender: FDA-Public Use
  Company Number: TCI2006A01119

PATIENT
  Age: 65 Year
  Sex: Male

DRUGS (10)
  1. LANSOPRAZOLE [Suspect]
     Indication: ACUTE MYOCARDIAL INFARCTION
     Dosage: 30 MG, (30MG, 1 IN 1 D); PER ORAL
     Route: 048
     Dates: start: 20060220, end: 20060227
  2. LANSOPRAZOLE [Suspect]
     Indication: RENAL FAILURE CHRONIC
     Dosage: 30 MG, (30MG, 1 IN 1 D); PER ORAL
     Route: 048
     Dates: start: 20060220, end: 20060227
  3. DORNER         (BERAPROST SODIUM) [Suspect]
     Indication: ARTERIOSCLEROSIS OBLITERANS
     Dosage: 120 MCG (40 MCG, 3 IN 1 D); PER ORAL
     Route: 048
     Dates: start: 20060220, end: 20060227
  4. TANATRIL           (IMIDAPRIL HYDROCHLORIDE) [Suspect]
     Indication: HYPERTENSION
     Dosage: 5 MG (5 MG, 1 IN 1 D); PER ORAL
     Route: 048
     Dates: start: 20060221, end: 20060227
  5. WARFARIN SODIUM [Suspect]
     Indication: ACUTE MYOCARDIAL INFARCTION
     Dosage: 2 MG (2 MG, 1 IN 1 D); PER ORAL
     Route: 048
     Dates: start: 20060220, end: 20060227
  6. WARFARIN SODIUM [Suspect]
     Indication: ANTICOAGULANT THERAPY
     Dosage: 2 MG (2 MG, 1 IN 1 D); PER ORAL
     Route: 048
     Dates: start: 20060220, end: 20060227
  7. ASPIRIN [Suspect]
     Indication: ACUTE MYOCARDIAL INFARCTION
     Dosage: 100 MG (100 MG, 1 IN 1 D); PER ORAL
     Route: 048
     Dates: start: 20060129, end: 20060227
  8. TICLOPIDINE HCL [Suspect]
     Indication: ACUTE MYOCARDIAL INFARCTION
     Dosage: 200 MG (100 MG, 2 IN 1 D); PER ORAL
     Route: 048
     Dates: start: 20060130, end: 20060227
  9. VERAPAMIL HYDROCHLORIDE [Suspect]
     Indication: ACUTE MYOCARDIAL INFARCTION
     Dosage: 120 MG (40 MG, 3 IN 1 D); PER ORAL
     Route: 048
     Dates: start: 20060209, end: 20060227
  10. CEFDINIR [Suspect]
     Indication: INFLAMMATION
     Dosage: 300 MG (100 MG, 3 IN 1 D); PER ORAL
     Route: 048
     Dates: start: 20060225, end: 20060227

REACTIONS (7)
  - ARTERIOSCLEROSIS OBLITERANS [None]
  - DISEASE PROGRESSION [None]
  - GANGRENE [None]
  - SEPSIS [None]
  - STEVENS-JOHNSON SYNDROME [None]
  - TOXIC EPIDERMAL NECROLYSIS [None]
  - URINARY TRACT INFECTION [None]
